FAERS Safety Report 7868880-5 (Version None)
Quarter: 2011Q4

REPORT INFORMATION
  Report Type: 
  Country: None (occurrence: None)
  Receive Date: 20111026
  Receipt Date: 20111026
  Transmission Date: 20120403
  Serious: No
  Sender: FDA-Public Use
  Company Number: None

PATIENT
  Age: 68 Year
  Sex: Male
  Weight: 95.1 kg

DRUGS (1)
  1. VARENICLINE [Suspect]
     Indication: SMOKING CESSATION THERAPY
     Dosage: 0.5 MG, BID, PO
     Route: 048
     Dates: start: 20090508, end: 20090604

REACTIONS (3)
  - URINARY RETENTION [None]
  - FEELING ABNORMAL [None]
  - DIARRHOEA [None]
